FAERS Safety Report 16769862 (Version 3)
Quarter: 2019Q4

REPORT INFORMATION
  Report Type: Spontaneous
  Country: DE (occurrence: DE)
  Receive Date: 20190904
  Receipt Date: 20191223
  Transmission Date: 20200122
  Serious: Yes (Hospitalization)
  Sender: FDA-Public Use
  Company Number: DE-ROCHE-2396422

PATIENT
  Age: 55 Year
  Sex: Male

DRUGS (6)
  1. OCREVUS [Suspect]
     Active Substance: OCRELIZUMAB
     Indication: PRIMARY PROGRESSIVE MULTIPLE SCLEROSIS
     Route: 042
     Dates: start: 20180827, end: 20190826
  2. FENISTIL [Concomitant]
     Active Substance: DIMETHINDENE
     Indication: MULTIPLE SCLEROSIS
     Dosage: 2 X 1ML
     Route: 042
     Dates: start: 20190826, end: 20190826
  3. FENISTIL [Concomitant]
     Active Substance: DIMETHINDENE
     Route: 042
     Dates: start: 20180827, end: 20190826
  4. METHYLPRED [Concomitant]
     Active Substance: METHYLPREDNISOLONE
     Route: 042
     Dates: start: 20180827, end: 20190826
  5. METHYLPRED [Concomitant]
     Active Substance: METHYLPREDNISOLONE
     Dosage: ONCE
     Route: 042
     Dates: start: 20190826, end: 20190826
  6. NITRANGIN [Concomitant]
     Dosage: 1 HUB
     Route: 060
     Dates: start: 20190827

REACTIONS (2)
  - Tachycardia [Recovered/Resolved]
  - Hypertension [Recovered/Resolved]

NARRATIVE: CASE EVENT DATE: 20190826
